FAERS Safety Report 25909043 (Version 1)
Quarter: 2025Q4

REPORT INFORMATION
  Report Type: Spontaneous
  Country: US (occurrence: US)
  Receive Date: 20251011
  Receipt Date: 20251011
  Transmission Date: 20260118
  Serious: No
  Sender: Kenvue
  Company Number: US-KENVUE-20250902021

PATIENT
  Age: 34 Year
  Sex: Female

DRUGS (3)
  1. PEPCID [Suspect]
     Active Substance: FAMOTIDINE
     Indication: Product used for unknown indication
     Dosage: UNK
     Route: 065
     Dates: start: 202508
  2. PF-07220060 Tablet [Concomitant]
     Indication: Product used for unknown indication
     Route: 065
  3. Vepdegestrant Tablet [Concomitant]
     Indication: Product used for unknown indication
     Route: 065

REACTIONS (4)
  - Pollakiuria [Unknown]
  - Micturition urgency [Unknown]
  - Gastrooesophageal reflux disease [Unknown]
  - Hypoaesthesia [Unknown]

NARRATIVE: CASE EVENT DATE: 20250801
